FAERS Safety Report 21638126 (Version 1)
Quarter: 2022Q4

REPORT INFORMATION
  Report Type: Report from Study
  Country: US (occurrence: US)
  Receive Date: 20221124
  Receipt Date: 20221124
  Transmission Date: 20230113
  Serious: No
  Sender: FDA-Public Use
  Company Number: US-ABBVIE-22K-163-4473848-00

PATIENT
  Sex: Female

DRUGS (2)
  1. HUMIRA [Suspect]
     Active Substance: ADALIMUMAB
     Indication: Hidradenitis
     Dosage: DOSING- 80 MG/0.8 ML INJECT 1 PEN UNDER THE SKIN EVERY 14 DAYS?STRENGTH: 80MG
     Route: 058
     Dates: start: 20211214
  2. HUMIRA [Suspect]
     Active Substance: ADALIMUMAB
     Route: 058
     Dates: start: 20211214

REACTIONS (3)
  - Self-consciousness [Unknown]
  - Loss of personal independence in daily activities [Unknown]
  - Hidradenitis [Unknown]

NARRATIVE: CASE EVENT DATE: 20210101
